FAERS Safety Report 6730901-0 (Version None)
Quarter: 2010Q2

REPORT INFORMATION
  Report Type: 
  Country: None (occurrence: None)
  Receive Date: 20100518
  Receipt Date: 20100506
  Transmission Date: 20101027
  Serious: Yes (Hospitalization, Disabling, Other)
  Sender: FDA-Public Use
  Company Number: PHEH2007US07706

PATIENT
  Sex: Female
  Weight: 117 kg

DRUGS (10)
  1. ESTRADERM [Suspect]
     Indication: MENOPAUSE
     Dosage: 0.1MG UNK
     Route: 062
     Dates: start: 19820101, end: 20000101
  2. CYCRIN [Suspect]
     Indication: MENOPAUSE
     Dosage: 10MG UNK
     Dates: start: 19820101, end: 20000101
  3. ZOLOFT [Concomitant]
     Indication: DEPRESSION
     Dosage: 50MG UNK
  4. PHENTERMINE [Concomitant]
     Dosage: 20 UNK, UNK
     Dates: start: 19970404
  5. PONDIMIN [Concomitant]
     Dosage: 30 UNK, UNK
     Dates: start: 19970404
  6. NOLVADEX [Concomitant]
  7. ZANTAC [Concomitant]
     Dosage: UNK
  8. VITAMIN TAB [Concomitant]
     Dosage: UNK
  9. ALLEGRA [Concomitant]
     Dosage: UNK
  10. KEFLEX [Concomitant]
     Dosage: UNK
     Dates: start: 20061106

REACTIONS (37)
  - ABASIA [None]
  - ANKLE FRACTURE [None]
  - ANXIETY [None]
  - ARRHYTHMIA [None]
  - BIOPSY BREAST [None]
  - BREAST CALCIFICATIONS [None]
  - BREAST CANCER IN SITU [None]
  - BREAST CYST [None]
  - BREAST CYST EXCISION [None]
  - BREAST FIBROSIS [None]
  - BREAST INFLAMMATION [None]
  - BREAST MASS [None]
  - BREAST OEDEMA [None]
  - CARDIAC MURMUR [None]
  - CARDIOMEGALY [None]
  - CONTUSION [None]
  - DEFORMITY [None]
  - DIASTOLIC DYSFUNCTION [None]
  - FAT NECROSIS [None]
  - FIBULA FRACTURE [None]
  - GENERAL PHYSICAL HEALTH DETERIORATION [None]
  - HYPOTHYROIDISM [None]
  - INFLAMMATION [None]
  - INJURY [None]
  - LYMPHOEDEMA [None]
  - MALIGNANT BREAST LUMP REMOVAL [None]
  - MAMMOGRAM ABNORMAL [None]
  - PAIN [None]
  - PULMONARY HYPERTENSION [None]
  - RADIOTHERAPY [None]
  - RIB FRACTURE [None]
  - ROAD TRAFFIC ACCIDENT [None]
  - SCAR [None]
  - TIBIA FRACTURE [None]
  - TRICUSPID VALVE INCOMPETENCE [None]
  - URINARY INCONTINENCE [None]
  - VARICOSE VEIN [None]
